FAERS Safety Report 7223165-5 (Version None)
Quarter: 2011Q1

REPORT INFORMATION
  Report Type: 
  Country: None (occurrence: None)
  Receive Date: 20110112
  Receipt Date: 20100204
  Transmission Date: 20110831
  Serious: No
  Sender: FDA-Public Use
  Company Number: US-ALLERGAN-1001463US

PATIENT
  Sex: Male

DRUGS (5)
  1. PLAVIX [Concomitant]
     Dosage: 75 MG, QD
  2. DILTIAZEM [Concomitant]
     Dosage: 240 MG, QD
  3. METOPROLOL [Concomitant]
     Dosage: 100 MG, QD
  4. RESTASIS [Suspect]
     Indication: DRY EYE
     Dosage: UNK
     Route: 047
     Dates: start: 20100103, end: 20100202
  5. ASPIRIN [Concomitant]
     Dosage: 81 MG, QD

REACTIONS (1)
  - TINNITUS [None]
